FAERS Safety Report 16850786 (Version 1)
Quarter: 2019Q3

REPORT INFORMATION
  Report Type: Spontaneous
  Country: US (occurrence: US)
  Receive Date: 20190925
  Receipt Date: 20190925
  Transmission Date: 20191005
  Serious: No
  Sender: FDA-Public Use
  Company Number: US-THERAPEUTICSMD-2019TMD01228

PATIENT
  Age: 57 Year
  Sex: Female
  Weight: 68.03 kg

DRUGS (1)
  1. IMVEXXY [Suspect]
     Active Substance: ESTRADIOL
     Indication: ATROPHIC VULVOVAGINITIS
     Dosage: 4 ?G, 2X/WEEK BEFORE BED ON MONDAY AND THURSDAY
     Route: 067
     Dates: start: 20190514

REACTIONS (4)
  - Macule [Recovering/Resolving]
  - Pruritus [Not Recovered/Not Resolved]
  - Urticaria [Recovering/Resolving]
  - Off label use [Not Recovered/Not Resolved]

NARRATIVE: CASE EVENT DATE: 201905
